FAERS Safety Report 8920943 (Version 1)
Quarter: 2012Q4

REPORT INFORMATION
  Report Type: 
  Country: FR (occurrence: FR)
  Receive Date: 20121121
  Receipt Date: 20121121
  Transmission Date: 20130627
  Serious: Yes (Hospitalization)
  Sender: FDA-Public Use
  Company Number: FR-ASTRAZENECA-2012SE86480

PATIENT
  Age: 73 Year
  Sex: Female

DRUGS (10)
  1. INEXIUM [Suspect]
     Indication: DUODENAL ULCER
     Route: 048
     Dates: start: 20120930
  2. DIAMOX [Suspect]
     Route: 048
     Dates: start: 20121003, end: 20121004
  3. LUCENTIS [Suspect]
     Indication: AGE-RELATED MACULAR DEGENERATION
     Dosage: Once/Single administration
     Route: 031
     Dates: start: 20121003, end: 20121003
  4. ALTIM [Suspect]
     Indication: SCIATICA
     Route: 065
     Dates: start: 20121002, end: 20121002
  5. CLAMOXYL [Suspect]
     Route: 048
  6. LEVOTHYROX [Concomitant]
  7. IMOVANE [Concomitant]
  8. MOVICOL [Concomitant]
  9. TRANSILANE [Concomitant]
  10. CYMBALTA [Concomitant]

REACTIONS (1)
  - Drug reaction with eosinophilia and systemic symptoms [Recovered/Resolved]
